FAERS Safety Report 11270808 (Version 1)
Quarter: 2015Q3

REPORT INFORMATION
  Report Type: Spontaneous
  Country: US (occurrence: US)
  Receive Date: 20150714
  Receipt Date: 20150714
  Transmission Date: 20151125
  Serious: No
  Sender: FDA-Public Use
  Company Number: US-ELI_LILLY_AND_COMPANY-US201506007361

PATIENT
  Age: 38 Year
  Sex: Female

DRUGS (4)
  1. BUPAP [Concomitant]
     Active Substance: ACETAMINOPHEN\BUTALBITAL
     Indication: HEADACHE
     Dosage: UNK, PRN
     Route: 065
     Dates: start: 20140101, end: 20150617
  2. TRULICITY [Suspect]
     Active Substance: DULAGLUTIDE
     Indication: PRODUCT USED FOR UNKNOWN INDICATION
     Dosage: 0.75 MG, WEEKLY (1/W)
     Route: 065
     Dates: start: 20150403, end: 20150615
  3. LEXAPRO [Concomitant]
     Active Substance: ESCITALOPRAM OXALATE
     Indication: DEPRESSION
     Dosage: 10 MG, UNKNOWN
     Route: 065
     Dates: start: 20140101, end: 20150617
  4. LISINOPRIL. [Concomitant]
     Active Substance: LISINOPRIL
     Indication: BLOOD PRESSURE MEASUREMENT
     Dosage: 10 MG, UNKNOWN
     Route: 065
     Dates: start: 20140601, end: 20150617

REACTIONS (3)
  - Injection site swelling [Unknown]
  - Pruritus [Unknown]
  - Urticaria [Unknown]

NARRATIVE: CASE EVENT DATE: 20150601
